FAERS Safety Report 16523205 (Version 1)
Quarter: 2019Q3

REPORT INFORMATION
  Report Type: Spontaneous
  Country: FI (occurrence: FI)
  Receive Date: 20190702
  Receipt Date: 20190702
  Transmission Date: 20191004
  Serious: Yes (Hospitalization)
  Sender: FDA-Public Use
  Company Number: FI-JNJFOC-20190636744

PATIENT
  Age: 31 Year
  Sex: Male

DRUGS (2)
  1. XARELTO [Suspect]
     Active Substance: RIVAROXABAN
     Indication: RENAL INFARCT
     Dosage: UNK
     Route: 048
  2. ASA [Concomitant]
     Active Substance: ASPIRIN
     Indication: RENAL INFARCT
     Dosage: UNK

REACTIONS (2)
  - Hepatic vein dilatation [Unknown]
  - Hepatic haematoma [Unknown]

NARRATIVE: CASE EVENT DATE: 20190619
